FAERS Safety Report 10958795 (Version 1)
Quarter: 2015Q1

REPORT INFORMATION
  Report Type: Spontaneous
  Country: US (occurrence: US)
  Receive Date: 20150326
  Receipt Date: 20150326
  Transmission Date: 20150721
  Serious: No
  Sender: FDA-Public Use
  Company Number: US-LUNDBECK-DKLU1109221

PATIENT
  Age: 12 Year
  Sex: Male
  Weight: 29 kg

DRUGS (3)
  1. KEPPRA [Concomitant]
     Active Substance: LEVETIRACETAM
     Indication: PRODUCT USED FOR UNKNOWN INDICATION
     Route: 065
  2. VITAMIN B6 [Concomitant]
     Active Substance: PYRIDOXINE HYDROCHLORIDE
     Indication: PRODUCT USED FOR UNKNOWN INDICATION
     Route: 065
  3. ONFI [Suspect]
     Active Substance: CLOBAZAM
     Indication: STATUS EPILEPTICUS
     Route: 048
     Dates: start: 201502

REACTIONS (1)
  - Drooling [Not Recovered/Not Resolved]

NARRATIVE: CASE EVENT DATE: 201502
